FAERS Safety Report 8455755-6 (Version None)
Quarter: 2012Q2

REPORT INFORMATION
  Report Type: 
  Country: None (occurrence: None)
  Receive Date: 20120621
  Receipt Date: 20120614
  Transmission Date: 20120825
  Serious: Yes (Other)
  Sender: FDA-Public Use
  Company Number: US-PFIZER INC-2012143917

PATIENT
  Sex: Female

DRUGS (11)
  1. ISOSORBIDE [Suspect]
     Dosage: UNK
  2. LIRAGLUTIDE (NN2211) [Suspect]
     Dosage: UNK
  3. PROTONIX [Suspect]
     Dosage: 40 MG, 2X/DAY
     Route: 048
  4. LIPITOR [Suspect]
     Dosage: UNK
  5. HYDROCHLOROTHIAZIDE AND SPIRONOLACTONE [Suspect]
     Dosage: UNK
  6. TOPROL-XL [Suspect]
     Dosage: UNK
  7. LISINOPRIL [Suspect]
     Dosage: UNK
  8. CYMBALTA [Suspect]
     Dosage: UNK
  9. TEMAZEPAM [Suspect]
     Dosage: UNK
  10. METFORMIN HCL [Suspect]
     Dosage: UNK
  11. PLAVIX [Suspect]
     Dosage: UNK

REACTIONS (2)
  - MYOCARDIAL INFARCTION [None]
  - CEREBROVASCULAR ACCIDENT [None]
